FAERS Safety Report 24593642 (Version 1)
Quarter: 2024Q4

REPORT INFORMATION
  Report Type: Spontaneous
  Country: US (occurrence: US)
  Receive Date: 20241108
  Receipt Date: 20241108
  Transmission Date: 20250115
  Serious: Yes (Death, Hospitalization, Other)
  Sender: AMGEN
  Company Number: US-AMGEN-USASP2024220603

PATIENT

DRUGS (1)
  1. PREDNISONE [Suspect]
     Active Substance: PREDNISONE
     Indication: Interstitial lung disease
     Dosage: UNK
     Route: 065

REACTIONS (7)
  - Death [Fatal]
  - Cardiac disorder [Unknown]
  - Respiratory disorder [Unknown]
  - Pulmonary hypertension [Unknown]
  - Interstitial lung disease [Unknown]
  - Lung transplant [Unknown]
  - Off label use [Unknown]
